FAERS Safety Report 14562125 (Version 2)
Quarter: 2018Q4

REPORT INFORMATION
  Report Type: Spontaneous
  Country: FR (occurrence: FR)
  Receive Date: 20180222
  Receipt Date: 20181019
  Transmission Date: 20190204
  Serious: Yes (Hospitalization)
  Sender: FDA-Public Use
  Company Number: FR-OTSUKA-2018_004369

PATIENT
  Age: 62 Year
  Sex: Male

DRUGS (3)
  1. JINARC [Suspect]
     Active Substance: TOLVAPTAN
     Dosage: 45 MG, QD
     Route: 048
     Dates: start: 20180206
  2. JINARC [Suspect]
     Active Substance: TOLVAPTAN
     Dosage: 15 MG, QD
     Route: 048
     Dates: start: 20180206
  3. JINARC [Suspect]
     Active Substance: TOLVAPTAN
     Indication: CONGENITAL CYSTIC KIDNEY DISEASE
     Dosage: 60 MG, QD
     Route: 048
     Dates: start: 20180126, end: 20180208

REACTIONS (4)
  - Hypertension [Unknown]
  - Dizziness [Recovered/Resolved]
  - Vertigo [Recovered/Resolved]
  - Headache [Recovered/Resolved]

NARRATIVE: CASE EVENT DATE: 20180208
